FAERS Safety Report 6233830-4 (Version None)
Quarter: 2009Q2

REPORT INFORMATION
  Report Type: 
  Country: None (occurrence: None)
  Receive Date: 20090618
  Receipt Date: 20081003
  Transmission Date: 20091009
  Serious: Yes (Hospitalization)
  Sender: FDA-Public Use
  Company Number: IL-CELGENEUS-AZAIL200800352

PATIENT
  Age: 70 Year
  Sex: Male

DRUGS (3)
  1. VIDAZA [Suspect]
     Indication: MYELODYSPLASTIC SYNDROME
     Route: 058
     Dates: start: 20080511
  2. VIDAZA [Suspect]
     Route: 058
     Dates: start: 20080615
  3. VIDAZA [Suspect]
     Route: 058
     Dates: start: 20080722

REACTIONS (1)
  - ACUTE MYOCARDIAL INFARCTION [None]
